FAERS Safety Report 7929077-3 (Version None)
Quarter: 2011Q4

REPORT INFORMATION
  Report Type: 
  Country: None (occurrence: None)
  Receive Date: 20111119
  Receipt Date: 20111110
  Transmission Date: 20120403
  Serious: Yes (Other)
  Sender: FDA-Public Use
  Company Number: US-ASTRAZENECA-2011SE68505

PATIENT
  Age: 54 Year
  Sex: Male

DRUGS (1)
  1. SYMBICORT [Suspect]
     Route: 055

REACTIONS (4)
  - GANGRENE [None]
  - PERIPHERAL ARTERIAL OCCLUSIVE DISEASE [None]
  - PAIN [None]
  - KIDNEY INFECTION [None]
